FAERS Safety Report 5724656-6 (Version None)
Quarter: 2008Q2

REPORT INFORMATION
  Report Type: 
  Country: None (occurrence: None)
  Receive Date: 20080430
  Receipt Date: 20080430
  Transmission Date: 20081010
  Serious: Yes (Other)
  Sender: FDA-Public Use
  Company Number: None

PATIENT
  Age: 49 Year
  Sex: Female
  Weight: 68.9467 kg

DRUGS (1)
  1. ZICAM ZINCUM GLUCONIUM 2X [Suspect]
     Indication: NASOPHARYNGITIS
     Dosage: 1 SWAB - APPLY IN EACH NOSTRIL EVERY 4-6 HRS
     Dates: start: 20080410, end: 20080413

REACTIONS (2)
  - AGEUSIA [None]
  - PAROSMIA [None]
